FAERS Safety Report 9129606 (Version 2)
Quarter: 2013Q1

REPORT INFORMATION
  Report Type: Report from Study
  Country: US (occurrence: US)
  Receive Date: 20130125
  Receipt Date: 20130302
  Transmission Date: 20140127
  Serious: Yes (Other)
  Sender: FDA-Public Use
  Company Number: US-US-EMD SERONO, INC.-7188775

PATIENT
  Sex: Female
  Weight: 119 kg

DRUGS (1)
  1. REBIF [Suspect]
     Indication: MULTIPLE SCLEROSIS
     Route: 058
     Dates: start: 20120831

REACTIONS (3)
  - Diabetes mellitus [Not Recovered/Not Resolved]
  - Alopecia [Unknown]
  - Injection site pain [Not Recovered/Not Resolved]
